FAERS Safety Report 6229236-4 (Version None)
Quarter: 2009Q2

REPORT INFORMATION
  Report Type: 
  Country: None (occurrence: None)
  Receive Date: 20090611
  Receipt Date: 20090611
  Transmission Date: 20091009
  Serious: Yes (Death, Hospitalization)
  Sender: FDA-Public Use
  Company Number: None

PATIENT
  Sex: Male
  Weight: 59.8 kg

DRUGS (3)
  1. CYCLOPHOSPHAMIDE [Suspect]
     Dosage: 7176 MG
  2. TACROLIMUS [Suspect]
     Dosage: 10.8 MG
  3. THIOTEPA [Suspect]
     Dosage: 598 MG

REACTIONS (15)
  - AGITATION [None]
  - BLOOD BILIRUBIN INCREASED [None]
  - BLOOD PRESSURE ABNORMAL [None]
  - BONE MARROW TRANSPLANT [None]
  - CONTINUOUS HAEMODIAFILTRATION [None]
  - GENERAL PHYSICAL HEALTH DETERIORATION [None]
  - HEPATOMEGALY [None]
  - HYPOTENSION [None]
  - LUNG INFILTRATION [None]
  - MENTAL STATUS CHANGES [None]
  - PULMONARY OEDEMA [None]
  - RESPIRATORY FAILURE [None]
  - URINE OUTPUT DECREASED [None]
  - VENOOCCLUSIVE LIVER DISEASE [None]
  - WEIGHT INCREASED [None]
